FAERS Safety Report 7678308-6 (Version None)
Quarter: 2011Q3

REPORT INFORMATION
  Report Type: 
  Country: None (occurrence: None)
  Receive Date: 20110811
  Receipt Date: 20110802
  Transmission Date: 20111222
  Serious: Yes (Other)
  Sender: FDA-Public Use
  Company Number: US-PERRIGO-11US006336

PATIENT
  Sex: Female
  Weight: 27.211 kg

DRUGS (3)
  1. PROACTIVE ENZYMES [Concomitant]
     Indication: GASTRIC DISORDER
     Dosage: UNK, DAILY
     Route: 048
     Dates: start: 20110701
  2. CHILDREN'S IBUPROFEN [Suspect]
     Indication: PAIN IN EXTREMITY
     Dosage: 2.5 TEASPOONS, ONCE
     Route: 048
     Dates: start: 20110730, end: 20110730
  3. VITAMIN B-12 [Concomitant]
     Indication: GASTRIC DISORDER
     Dosage: 1000 MG, QD
     Route: 048

REACTIONS (4)
  - INCOHERENT [None]
  - CONFUSIONAL STATE [None]
  - FEELING DRUNK [None]
  - DISORIENTATION [None]
